FAERS Safety Report 22192489 (Version 2)
Quarter: 2023Q2

REPORT INFORMATION
  Report Type: Spontaneous
  Country: CZ (occurrence: CZ)
  Receive Date: 20230410
  Receipt Date: 20230512
  Transmission Date: 20230722
  Serious: Yes (Death, Other)
  Sender: FDA-Public Use
  Company Number: CZ-ROCHE-3325454

PATIENT
  Age: 3 Year
  Sex: Female
  Weight: 9 kg

DRUGS (2)
  1. RITUXIMAB [Suspect]
     Active Substance: RITUXIMAB
     Indication: Evans syndrome
     Dosage: UNK
     Route: 065
  2. CYCLOSPORINE [Suspect]
     Active Substance: CYCLOSPORINE
     Indication: Evans syndrome
     Dosage: UNK
     Route: 065

REACTIONS (3)
  - Enterococcal sepsis [Fatal]
  - Multiple-drug resistance [Unknown]
  - Drug ineffective for unapproved indication [Unknown]
